FAERS Safety Report 4350477-5 (Version None)
Quarter: 2004Q2

REPORT INFORMATION
  Report Type: 
  Country: None (occurrence: None)
  Receive Date: 20040430
  Receipt Date: 20040421
  Transmission Date: 20050107
  Serious: Yes (Other)
  Sender: FDA-Public Use
  Company Number: PHEH2004US04511

PATIENT
  Age: 58 Year
  Sex: Female

DRUGS (2)
  1. CAFERGOT [Suspect]
     Indication: MIGRAINE
     Dosage: UNK, UNK
     Route: 048
  2. BELLERGAL SPACETABS [Suspect]
     Indication: MIGRAINE
     Dosage: .6 MG, UNK
     Route: 048

REACTIONS (2)
  - PULMONARY FIBROSIS [None]
  - RAYNAUD'S PHENOMENON [None]
